FAERS Safety Report 9912637 (Version 1)
Quarter: 2014Q1

REPORT INFORMATION
  Report Type: Spontaneous
  Country: US (occurrence: None)
  Receive Date: 20140218
  Receipt Date: 20140218
  Transmission Date: 20141002
  Serious: No
  Sender: FDA-Public Use
  Company Number: None

PATIENT
  Sex: 0

DRUGS (2)
  1. STERILE WATER [Suspect]
  2. 1/2 NS WITH 20 MEQ KCL [Suspect]

REACTIONS (1)
  - Circumstance or information capable of leading to medication error [None]
